FAERS Safety Report 5345960-X (Version None)
Quarter: 2007Q2

REPORT INFORMATION
  Report Type: 
  Country: None (occurrence: None)
  Receive Date: 20070605
  Receipt Date: 20070529
  Transmission Date: 20071010
  Serious: Yes (Other)
  Sender: FDA-Public Use
  Company Number: GB-ROCHE-500184

PATIENT
  Age: 73 Year
  Sex: Male
  Weight: 98 kg

DRUGS (2)
  1. XENICAL [Suspect]
     Indication: OBESITY
     Route: 048
     Dates: start: 20070427, end: 20070521
  2. XENICAL [Suspect]
     Route: 048
     Dates: start: 20070528

REACTIONS (4)
  - ARTHRALGIA [None]
  - HEMIPARESIS [None]
  - HYPOAESTHESIA [None]
  - PARAESTHESIA [None]
